FAERS Safety Report 24142198 (Version 1)
Quarter: 2024Q3

REPORT INFORMATION
  Report Type: Spontaneous
  Country: US (occurrence: None)
  Receive Date: 20240726
  Receipt Date: 20240726
  Transmission Date: 20241016
  Serious: No
  Sender: ASTRAZENECA
  Company Number: 2024A134141

PATIENT
  Age: 70 Year
  Sex: Female

DRUGS (2)
  1. CALQUENCE [Suspect]
     Active Substance: ACALABRUTINIB
     Indication: Chronic lymphocytic leukaemia
     Route: 048
  2. COVID-19 VACCINE NOS [Suspect]
     Active Substance: COVID-19 VACCINE

REACTIONS (1)
  - COVID-19 [Unknown]
